FAERS Safety Report 19634401 (Version 1)
Quarter: 2021Q3

REPORT INFORMATION
  Report Type: Spontaneous
  Country: US (occurrence: US)
  Receive Date: 20210730
  Receipt Date: 20210730
  Transmission Date: 20211014
  Serious: No
  Sender: FDA-Public Use
  Company Number: US-UNITED THERAPEUTICS-UNT-2021-014189

PATIENT
  Age: 69 Year
  Sex: Female
  Weight: 105.67 kg

DRUGS (4)
  1. REMODULIN [Suspect]
     Active Substance: TREPROSTINIL
     Dosage: 0.0245 ?G/KG, CONTINUING
     Route: 041
     Dates: start: 202107
  2. REMODULIN [Suspect]
     Active Substance: TREPROSTINIL
     Dosage: 0.02575 ?G/KG, CONTINUING
     Route: 041
     Dates: start: 202107
  3. REMODULIN [Suspect]
     Active Substance: TREPROSTINIL
     Indication: PULMONARY ARTERIAL HYPERTENSION
     Dosage: UNK, CONTINUING
     Route: 041
     Dates: start: 20210721
  4. REVATIO [Concomitant]
     Active Substance: SILDENAFIL CITRATE
     Indication: PRODUCT USED FOR UNKNOWN INDICATION
     Dosage: UNK
     Route: 065

REACTIONS (8)
  - Headache [Unknown]
  - Arthritis [Unknown]
  - Hypoaesthesia [Unknown]
  - Pain in jaw [Unknown]
  - Weight decreased [Unknown]
  - Paraesthesia [Unknown]
  - Swelling face [Unknown]
  - Night sweats [Unknown]

NARRATIVE: CASE EVENT DATE: 202107
